FAERS Safety Report 10179847 (Version 2)
Quarter: 2014Q2

REPORT INFORMATION
  Report Type: Spontaneous
  Country: US (occurrence: None)
  Receive Date: 20140515
  Receipt Date: 20140616
  Transmission Date: 20141212
  Serious: Yes (Hospitalization)
  Sender: FDA-Public Use
  Company Number: UTC-048395

PATIENT
  Age: 71 Year
  Sex: Female
  Weight: 92.99 kg

DRUGS (3)
  1. REMODULIN [Suspect]
     Indication: PULMONARY ARTERIAL HYPERTENSION
     Dosage: 43.2 UG/KG (0.3UG/KG, 1 IN 1 MIN) INTRAVENOUS DRIP
     Route: 042
     Dates: start: 20130125
  2. TRACLEER [Concomitant]
  3. SILDENAFIL [Concomitant]

REACTIONS (2)
  - Pneumothorax [None]
  - Chronic obstructive pulmonary disease [None]
